FAERS Safety Report 19681729 (Version 2)
Quarter: 2021Q3

REPORT INFORMATION
  Report Type: Spontaneous
  Country: US (occurrence: US)
  Receive Date: 20210810
  Receipt Date: 20210916
  Transmission Date: 20211014
  Serious: Yes (Other)
  Sender: FDA-Public Use
  Company Number: US-ASTRAZENECA-2021A661775

PATIENT
  Age: 66 Year
  Sex: Female
  Weight: 58.1 kg

DRUGS (2)
  1. BEVESPI AEROSPHERE [Suspect]
     Active Substance: FORMOTEROL FUMARATE\GLYCOPYRROLATE
     Indication: CHRONIC OBSTRUCTIVE PULMONARY DISEASE
     Dosage: 9 MCG/4.8 MCG, 2 PUFFS, TWICE DAILY
     Route: 055
  2. PREDNISONE. [Concomitant]
     Active Substance: PREDNISONE

REACTIONS (6)
  - Product delivery mechanism issue [Unknown]
  - Lung neoplasm malignant [Unknown]
  - Dyspnoea [Unknown]
  - Device mechanical issue [Unknown]
  - Chronic obstructive pulmonary disease [Unknown]
  - Speech disorder [Unknown]

NARRATIVE: CASE EVENT DATE: 2014
